FAERS Safety Report 5828600-2 (Version None)
Quarter: 2008Q3

REPORT INFORMATION
  Report Type: 
  Country: None (occurrence: None)
  Receive Date: 20080731
  Receipt Date: 20080730
  Transmission Date: 20090109
  Serious: Yes (Hospitalization)
  Sender: FDA-Public Use
  Company Number: DK-BRISTOL-MYERS SQUIBB COMPANY-13874383

PATIENT
  Age: 31 Year
  Sex: Male

DRUGS (13)
  1. TAXOL [Suspect]
     Indication: GERM CELL CANCER
     Route: 042
     Dates: start: 20070726, end: 20070726
  2. ETOPOSIDE [Suspect]
     Indication: GERM CELL CANCER
     Route: 042
     Dates: start: 20070726, end: 20070730
  3. CISPLATIN [Suspect]
     Indication: GERM CELL CANCER
     Route: 042
     Dates: start: 20070726, end: 20070730
  4. BLEOMYCIN SULFATE [Suspect]
     Indication: GERM CELL CANCER
     Route: 042
     Dates: start: 20070727, end: 20070727
  5. FILGRASTIM [Concomitant]
  6. PREDNISOLONE [Concomitant]
     Dosage: TAKEN FOR 4 DAYS
  7. PANTOPRAZOLE SODIUM [Concomitant]
     Dosage: TAKEN FOR 2 WEEKS
     Dates: start: 20070724
  8. APREPITANT [Concomitant]
     Dosage: GIVEN 3DAYS
  9. ONDANSETRON [Concomitant]
     Dosage: GIVEN 1ST DAY
  10. METOCLOPRAMIDE HCL [Concomitant]
     Dates: start: 20070715
  11. LORAZEPAM [Concomitant]
  12. MEROPENEM [Concomitant]
     Route: 042
     Dates: start: 20070714, end: 20070716
  13. CIPROFLOXACIN [Concomitant]
     Dates: start: 20070714, end: 20070716

REACTIONS (9)
  - ANAEMIA [None]
  - DIARRHOEA [None]
  - DIZZINESS [None]
  - FATIGUE [None]
  - FEBRILE NEUTROPENIA [None]
  - MOUTH ULCERATION [None]
  - NAUSEA [None]
  - STOMATITIS [None]
  - VOMITING [None]
